FAERS Safety Report 18731743 (Version 1)
Quarter: 2021Q1

REPORT INFORMATION
  Report Type: Report from Study
  Country: CN (occurrence: CN)
  Receive Date: 20210112
  Receipt Date: 20210112
  Transmission Date: 20210419
  Serious: Yes (Other)
  Sender: FDA-Public Use
  Company Number: CN-JNJFOC-20210108298

PATIENT

DRUGS (6)
  1. CARBAMAZEPINE. [Suspect]
     Active Substance: CARBAMAZEPINE
     Dosage: 15 ~ 20 MG/(KG  D)
     Route: 048
  2. LEVETIRACETAM. [Suspect]
     Active Substance: LEVETIRACETAM
     Indication: EPILEPSY
     Dosage: INITIAL DOSE OF 10 ~ 20 MG/(KG  D)
     Route: 048
  3. CARBAMAZEPINE. [Suspect]
     Active Substance: CARBAMAZEPINE
     Indication: EPILEPSY
     Dosage: INITIAL DOSE WAS 5 MG/(KG/D)
     Route: 048
  4. TOPIRAMATE. [Suspect]
     Active Substance: TOPIRAMATE
     Indication: EPILEPSY
     Dosage: INITIAL DOSE WAS 0.5? 1.0 MG/(KG/D)
     Route: 048
  5. TOPIRAMATE. [Suspect]
     Active Substance: TOPIRAMATE
     Dosage: 4 ~ 8 MG/(KG  D).
     Route: 048
  6. LEVETIRACETAM. [Suspect]
     Active Substance: LEVETIRACETAM
     Dosage: INCREASED TO 30 ~ 40 MG/(KG  D) AFTER TWO WEEKS
     Route: 048

REACTIONS (5)
  - Renal impairment [Unknown]
  - Dizziness [Unknown]
  - Somnolence [Unknown]
  - Hepatic function abnormal [Unknown]
  - Diarrhoea [Unknown]
